FAERS Safety Report 19457916 (Version 1)
Quarter: 2021Q2

REPORT INFORMATION
  Report Type: Spontaneous
  Country: US (occurrence: US)
  Receive Date: 20210624
  Receipt Date: 20210624
  Transmission Date: 20210717
  Serious: No
  Sender: FDA-Public Use
  Company Number: US-DECIPHERA PHARMACEUTICALS LLC-2021US000250

PATIENT
  Age: 63 Year
  Sex: Female

DRUGS (6)
  1. QINLOCK [Suspect]
     Active Substance: RIPRETINIB
     Dosage: 150 MILLIGRAM, QD
     Route: 048
  2. MUPIROCIN. [Concomitant]
     Active Substance: MUPIROCIN
     Indication: PRODUCT USED FOR UNKNOWN INDICATION
     Dosage: UNK
     Route: 065
  3. ZOFRAN [Concomitant]
     Active Substance: ONDANSETRON HYDROCHLORIDE
     Indication: PRODUCT USED FOR UNKNOWN INDICATION
     Dosage: UNK
     Route: 065
  4. EDARBYCLOR [Concomitant]
     Active Substance: AZILSARTAN KAMEDOXOMIL\CHLORTHALIDONE
     Indication: PRODUCT USED FOR UNKNOWN INDICATION
     Dosage: UNK
     Route: 065
  5. QINLOCK [Suspect]
     Active Substance: RIPRETINIB
     Indication: GASTROINTESTINAL STROMAL TUMOUR
     Dosage: 150 MILLIGRAM, QD
     Route: 048
     Dates: start: 20210315
  6. CYCLOBENZAPRINE. [Concomitant]
     Active Substance: CYCLOBENZAPRINE
     Indication: PRODUCT USED FOR UNKNOWN INDICATION
     Dosage: UNK
     Route: 065

REACTIONS (16)
  - Muscle atrophy [Unknown]
  - Erythema [Unknown]
  - Dry skin [Unknown]
  - Skin fissures [Unknown]
  - Skin disorder [Unknown]
  - Rash [Unknown]
  - Constipation [Unknown]
  - Decreased appetite [Unknown]
  - Hypertension [Unknown]
  - Fall [Unknown]
  - Blood thyroid stimulating hormone increased [Unknown]
  - Oropharyngeal pain [Unknown]
  - Ill-defined disorder [Unknown]
  - Paraesthesia [Unknown]
  - Muscle spasms [Unknown]
  - Nausea [Unknown]

NARRATIVE: CASE EVENT DATE: 20210325
